FAERS Safety Report 13050590 (Version 3)
Quarter: 2017Q1

REPORT INFORMATION
  Report Type: Report from Study
  Country: BR (occurrence: BR)
  Receive Date: 20161221
  Receipt Date: 20170123
  Transmission Date: 20170428
  Serious: Yes (Other)
  Sender: FDA-Public Use
  Company Number: BR-JNJFOC-20161217423

PATIENT
  Age: 44 Year
  Sex: Female

DRUGS (4)
  1. IMBRUVICA [Suspect]
     Active Substance: IBRUTINIB
     Indication: MANTLE CELL LYMPHOMA
     Route: 048
     Dates: start: 20161103
  2. DIPYRONE [Concomitant]
     Active Substance: DIPYRONE
     Route: 065
  3. OMEPRAZOLE. [Concomitant]
     Active Substance: OMEPRAZOLE
  4. ALOPURINOL [Concomitant]
     Active Substance: ALLOPURINOL

REACTIONS (12)
  - Pain [Unknown]
  - Somnolence [Unknown]
  - Erythema [Unknown]
  - Arthropod sting [Unknown]
  - Vascular fragility [Unknown]
  - Impaired healing [Unknown]
  - Blister [Unknown]
  - Arthralgia [Unknown]
  - Muscular weakness [Unknown]
  - Malaise [Unknown]
  - Skin fragility [Unknown]
  - Petechiae [Unknown]

NARRATIVE: CASE EVENT DATE: 20170101
